FAERS Safety Report 5031454-8 (Version None)
Quarter: 2006Q2

REPORT INFORMATION
  Report Type: 
  Country: None (occurrence: None)
  Receive Date: 20060616
  Receipt Date: 20060531
  Transmission Date: 20061013
  Serious: Yes (Other)
  Sender: FDA-Public Use
  Company Number: US200605004573

PATIENT
  Sex: Female
  Weight: 186.4 kg

DRUGS (2)
  1. CYMBALTA [Suspect]
     Indication: PAIN
     Dosage: 60 MG
     Dates: start: 20051020
  2. ZOLOFT [Concomitant]

REACTIONS (4)
  - DEPRESSION [None]
  - GASTRIC BYPASS [None]
  - SPINAL FUSION SURGERY [None]
  - WEIGHT DECREASED [None]
